FAERS Safety Report 7888159-5 (Version None)
Quarter: 2011Q4

REPORT INFORMATION
  Report Type: 
  Country: None (occurrence: None)
  Receive Date: 20111103
  Receipt Date: 20111019
  Transmission Date: 20120403
  Serious: Yes (Other)
  Sender: FDA-Public Use
  Company Number: CA-JNJFOC-20111100417

PATIENT
  Sex: Female
  Weight: 128 kg

DRUGS (1)
  1. REMICADE [Suspect]
     Indication: CROHN'S DISEASE
     Route: 042
     Dates: start: 20101217

REACTIONS (2)
  - PERITONSILLAR ABSCESS [None]
  - CHOLECYSTITIS [None]
